FAERS Safety Report 10992127 (Version 8)
Quarter: 2017Q3

REPORT INFORMATION
  Report Type: Report from Study
  Country: JP (occurrence: JP)
  Receive Date: 20150406
  Receipt Date: 20170912
  Transmission Date: 20171127
  Serious: Yes (Death, Life-Threatening, Hospitalization, Congenital Anomaly, Other)
  Sender: FDA-Public Use
  Company Number: JP-GILEAD-2015-0146725

PATIENT
  Age: 11 Year
  Sex: Male
  Weight: 30.7 kg

DRUGS (42)
  1. AMBRISENTAN [Suspect]
     Active Substance: AMBRISENTAN
     Indication: OXYGEN SATURATION DECREASED
     Dosage: 1.5 MG, BID
     Route: 048
     Dates: start: 20130927, end: 20131015
  2. WARFARIN [Concomitant]
     Active Substance: WARFARIN
     Indication: CAVOPULMONARY ANASTOMOSIS
  3. TRANSAMIN [Concomitant]
     Active Substance: TRANEXAMIC ACID
     Indication: PROTEIN-LOSING GASTROENTEROPATHY
     Dosage: UNK
     Dates: start: 20140516, end: 20151105
  4. PREDONINE [Concomitant]
     Active Substance: PREDNISOLONE
     Indication: CAVOPULMONARY ANASTOMOSIS
     Dosage: UNK
     Dates: end: 20150130
  5. AMBRISENTAN [Suspect]
     Active Substance: AMBRISENTAN
     Indication: OXYGEN SATURATION DECREASED
     Dosage: 1.75 MG, BID
     Route: 048
     Dates: start: 20131015, end: 20150913
  6. AMBRISENTAN [Suspect]
     Active Substance: AMBRISENTAN
     Indication: PROTEIN-LOSING GASTROENTEROPATHY
     Dosage: 0.1 MG/KG, 1D
     Route: 048
  7. ADCIRCA [Suspect]
     Active Substance: TADALAFIL
     Indication: OXYGEN SATURATION DECREASED
     Dosage: UNK
     Route: 048
     Dates: end: 20150914
  8. RENIVACE [Concomitant]
     Active Substance: ENALAPRIL
     Indication: OXYGEN SATURATION DECREASED
     Dosage: UNK
     Dates: end: 20151105
  9. RENIVACE [Concomitant]
     Active Substance: ENALAPRIL
     Indication: CAVOPULMONARY ANASTOMOSIS
  10. ALDACTONE A [Concomitant]
     Active Substance: SPIRONOLACTONE
     Indication: CAVOPULMONARY ANASTOMOSIS
  11. E KEPPRA [Concomitant]
     Active Substance: LEVETIRACETAM
     Indication: CONVULSION PROPHYLAXIS
     Dosage: 25.0 MG/KG, 1D
     Dates: start: 201311, end: 20151105
  12. SPIRONOLACTONE. [Concomitant]
     Active Substance: SPIRONOLACTONE
     Indication: PULMONARY OEDEMA
  13. TOLVAPTAN [Concomitant]
     Active Substance: TOLVAPTAN
  14. SAMSCA [Concomitant]
     Active Substance: TOLVAPTAN
     Indication: PROTEIN-LOSING GASTROENTEROPATHY
  15. SPIRONOLACTONE. [Concomitant]
     Active Substance: SPIRONOLACTONE
     Indication: OXYGEN SATURATION DECREASED
     Dosage: 75 MG, BID
     Dates: end: 20151105
  16. PREDONINE [Concomitant]
     Active Substance: PREDNISOLONE
     Indication: PROTEIN-LOSING GASTROENTEROPATHY
     Dosage: UNK
     Dates: start: 20150131, end: 20151105
  17. AMBRISENTAN [Suspect]
     Active Substance: AMBRISENTAN
     Indication: CAVOPULMONARY ANASTOMOSIS
     Dosage: 2.25 MG, BID
     Route: 048
     Dates: start: 20150914, end: 20151105
  18. ALDACTONE A [Concomitant]
     Active Substance: SPIRONOLACTONE
     Indication: PROTEIN-LOSING GASTROENTEROPATHY
  19. SPIRONOLACTONE. [Concomitant]
     Active Substance: SPIRONOLACTONE
     Indication: PROTEIN-LOSING GASTROENTEROPATHY
  20. FUROSEMIDE. [Concomitant]
     Active Substance: FUROSEMIDE
     Indication: CAVOPULMONARY ANASTOMOSIS
     Dosage: UNK
  21. FAMOTIDINE. [Concomitant]
     Active Substance: FAMOTIDINE
  22. ADCIRCA [Suspect]
     Active Substance: TADALAFIL
     Indication: CAVOPULMONARY ANASTOMOSIS
     Dosage: UNK
     Route: 048
     Dates: start: 20150915, end: 20151105
  23. ADCIRCA [Suspect]
     Active Substance: TADALAFIL
     Indication: PROTEIN-LOSING GASTROENTEROPATHY
  24. ALDACTONE A [Concomitant]
     Active Substance: SPIRONOLACTONE
     Indication: OXYGEN SATURATION DECREASED
     Dosage: UNK
  25. PREDONINE [Concomitant]
     Active Substance: PREDNISOLONE
     Dosage: UNK
     Dates: end: 20150130
  26. SAMSCA [Concomitant]
     Active Substance: TOLVAPTAN
     Indication: CAVOPULMONARY ANASTOMOSIS
  27. SPIRONOLACTONE. [Concomitant]
     Active Substance: SPIRONOLACTONE
     Indication: CAVOPULMONARY ANASTOMOSIS
  28. FUROSEMIDE. [Concomitant]
     Active Substance: FUROSEMIDE
     Indication: OXYGEN SATURATION DECREASED
     Dosage: UNK
  29. WARFARIN [Concomitant]
     Active Substance: WARFARIN
     Indication: OXYGEN SATURATION DECREASED
     Dosage: UNK
     Dates: start: 20150131, end: 20151105
  30. RENIVACE [Concomitant]
     Active Substance: ENALAPRIL
     Indication: PROTEIN-LOSING GASTROENTEROPATHY
  31. WARFARIN [Concomitant]
     Active Substance: WARFARIN
     Indication: PROTEIN-LOSING GASTROENTEROPATHY
  32. EXCEGRAN [Concomitant]
     Active Substance: ZONISAMIDE
     Dosage: UNK
     Dates: start: 201311, end: 20151105
  33. LOPEMIN                            /00384302/ [Concomitant]
     Active Substance: LOPERAMIDE HYDROCHLORIDE
     Dosage: UNK
     Dates: start: 20140310, end: 20140530
  34. SAMSCA [Concomitant]
     Active Substance: TOLVAPTAN
     Indication: OXYGEN SATURATION DECREASED
     Dosage: UNK
     Dates: start: 20150203, end: 20151105
  35. FUROSEMIDE. [Concomitant]
     Active Substance: FUROSEMIDE
     Indication: OXYGEN SATURATION DECREASED
     Dosage: 20 MG, BID
     Dates: end: 20151105
  36. LOPEMIN                            /00384302/ [Concomitant]
     Active Substance: LOPERAMIDE HYDROCHLORIDE
     Dosage: UNK
     Dates: start: 20140310, end: 20140530
  37. OMEPRAZOLE. [Concomitant]
     Active Substance: OMEPRAZOLE
     Dosage: UNK
  38. ENALAPRIL [Concomitant]
     Active Substance: ENALAPRIL
  39. PREDONINE [Concomitant]
     Active Substance: PREDNISOLONE
     Dosage: UNK
     Dates: start: 20150131, end: 20151105
  40. WARFARIN [Concomitant]
     Active Substance: WARFARIN
     Indication: OXYGEN SATURATION DECREASED
     Dosage: UNK
     Dates: end: 20150130
  41. FUROSEMIDE. [Concomitant]
     Active Substance: FUROSEMIDE
     Indication: PULMONARY OEDEMA
     Dosage: UNK
  42. FUROSEMIDE. [Concomitant]
     Active Substance: FUROSEMIDE
     Indication: PROTEIN-LOSING GASTROENTEROPATHY

REACTIONS (44)
  - Protein-losing gastroenteropathy [Recovering/Resolving]
  - Pulmonary congestion [Unknown]
  - Hepatic function abnormal [Unknown]
  - Hyperbilirubinaemia [Fatal]
  - Mitral valve incompetence [Unknown]
  - Arteriovenous malformation [Recovering/Resolving]
  - Central venous pressure increased [Unknown]
  - Left ventricle outflow tract obstruction [Unknown]
  - Seizure [Unknown]
  - Off label use [Not Recovered/Not Resolved]
  - Hyperbilirubinaemia [Unknown]
  - Disorientation [Unknown]
  - Circulatory collapse [Fatal]
  - Hepatic failure [Fatal]
  - Pharyngitis [Recovering/Resolving]
  - Pharyngitis [Recovering/Resolving]
  - Ischaemic hepatitis [Fatal]
  - Cardiac failure [Unknown]
  - Upper respiratory tract inflammation [Recovering/Resolving]
  - Hyponatraemia [Recovering/Resolving]
  - Gastroenteritis [Recovering/Resolving]
  - Gastric mucosal lesion [Unknown]
  - Cytomegalovirus test positive [Unknown]
  - Liver disorder [Fatal]
  - Aortic valve incompetence [Unknown]
  - Pharyngitis [Recovering/Resolving]
  - Cardiac failure [Fatal]
  - Anastomotic stenosis [Unknown]
  - Melaena [Recovering/Resolving]
  - Upper respiratory tract inflammation [Recovering/Resolving]
  - Anaemia [Not Recovered/Not Resolved]
  - Anaemia [Unknown]
  - Prerenal failure [Fatal]
  - Pharyngitis [Recovering/Resolving]
  - Pharyngitis [Not Recovered/Not Resolved]
  - Anaemia [Recovering/Resolving]
  - Generalised oedema [Unknown]
  - Hypoproteinaemia [Unknown]
  - Blood pressure decreased [Recovered/Resolved]
  - Pulmonary oedema [Unknown]
  - Cerebral haemorrhage [Recovering/Resolving]
  - Cerebral haemorrhage [Unknown]
  - Respiratory disorder [Unknown]
  - Ammonia increased [Unknown]

NARRATIVE: CASE EVENT DATE: 20130927
